FAERS Safety Report 24330008 (Version 1)
Quarter: 2024Q3

REPORT INFORMATION
  Report Type: Spontaneous
  Country: FR (occurrence: None)
  Receive Date: 20240917
  Receipt Date: 20240917
  Transmission Date: 20241016
  Serious: Yes (Other)
  Sender: ASTRAZENECA
  Company Number: 2024A207974

PATIENT
  Age: 62 Year
  Sex: Male

DRUGS (1)
  1. SYMBICORT [Suspect]
     Active Substance: BUDESONIDE\FORMOTEROL FUMARATE DIHYDRATE
     Indication: Chronic obstructive pulmonary disease
     Dosage: 400 MICROGRAMS PER INHALATION, DAILY
     Route: 055
     Dates: end: 202409

REACTIONS (1)
  - Pseudo Cushing^s syndrome [Unknown]

NARRATIVE: CASE EVENT DATE: 20240901
